FAERS Safety Report 8098733-1 (Version None)
Quarter: 2012Q1

REPORT INFORMATION
  Report Type: 
  Country: None (occurrence: None)
  Receive Date: 20120131
  Receipt Date: 20120126
  Transmission Date: 20120608
  Serious: Yes (Death, Other)
  Sender: FDA-Public Use
  Company Number: CA-PFIZER INC-2012024165

PATIENT
  Age: 54 Year
  Sex: Female
  Weight: 81 kg

DRUGS (5)
  1. QUETIAPINE [Concomitant]
  2. DIPHENHYDRAMINE HCL [Suspect]
  3. MORPHINE SULFATE [Suspect]
  4. CLONAZEPAM [Concomitant]
  5. CITALOPRAM [Concomitant]

REACTIONS (1)
  - DEATH [None]
